FAERS Safety Report 6825489-X (Version None)
Quarter: 2010Q3

REPORT INFORMATION
  Report Type: 
  Country: None (occurrence: None)
  Receive Date: 20100708
  Receipt Date: 20070208
  Transmission Date: 20110219
  Serious: No
  Sender: FDA-Public Use
  Company Number: US-PFIZER INC-2006155900

PATIENT
  Age: 49 Year
  Sex: Female
  Weight: 42.2 kg

DRUGS (4)
  1. CHANTIX [Suspect]
     Indication: SMOKING CESSATION THERAPY
     Dates: start: 20061031
  2. MULTI-VITAMINS [Concomitant]
  3. CALCIUM CARBONATE [Concomitant]
  4. KLONOPIN [Concomitant]

REACTIONS (2)
  - GINGIVAL PAIN [None]
  - NAUSEA [None]
